FAERS Safety Report 9325850 (Version 1)
Quarter: 2013Q2

REPORT INFORMATION
  Report Type: Spontaneous
  Country: US (occurrence: US)
  Receive Date: 20130604
  Receipt Date: 20130604
  Transmission Date: 20140414
  Serious: No
  Sender: FDA-Public Use
  Company Number: US-JNJFOC-20130515960

PATIENT
  Age: 57 Year
  Sex: Female
  Weight: 83.46 kg

DRUGS (1)
  1. DURAGESIC [Suspect]
     Indication: PAIN
     Route: 062

REACTIONS (4)
  - Wrong technique in drug usage process [Unknown]
  - Device leakage [Unknown]
  - Poor quality drug administered [Unknown]
  - Drug ineffective [Unknown]
